FAERS Safety Report 8110876-2 (Version None)
Quarter: 2012Q1

REPORT INFORMATION
  Report Type: 
  Country: None (occurrence: None)
  Receive Date: 20120203
  Receipt Date: 20120201
  Transmission Date: 20120608
  Serious: Yes (Other)
  Sender: FDA-Public Use
  Company Number: US-AMGEN-USASP2012006834

PATIENT
  Age: 55 Year
  Sex: Female
  Weight: 66.4 kg

DRUGS (6)
  1. DOXORUBICIN HCL [Suspect]
     Indication: BREAST CANCER
  2. NORVASC [Concomitant]
     Indication: HYPERTENSION
  3. NEULASTA [Suspect]
     Indication: BREAST CANCER
  4. BEVACIZUMAB [Suspect]
     Indication: BREAST CANCER
     Dosage: OVER 30-90 MIN DAY 1
     Route: 042
     Dates: start: 20110223, end: 20110920
  5. PACLITAXEL [Suspect]
     Indication: BREAST CANCER
  6. CYCLOPHOSPHAMIDE [Suspect]
     Indication: BREAST CANCER

REACTIONS (2)
  - RESTRICTIVE CARDIOMYOPATHY [None]
  - LEFT VENTRICULAR DYSFUNCTION [None]
